FAERS Safety Report 17543009 (Version 2)
Quarter: 2020Q2

REPORT INFORMATION
  Report Type: Spontaneous
  Country: US (occurrence: US)
  Receive Date: 20200316
  Receipt Date: 20200427
  Transmission Date: 20200713
  Serious: Yes (Death)
  Sender: FDA-Public Use
  Company Number: US-ROCHE-2567386

PATIENT
  Sex: Female

DRUGS (10)
  1. CALCIUM MAGNESIUM POTASSIUM CARBONATE CHLORIDE HYDROXIDE [Concomitant]
  2. VITAMIN C [Concomitant]
     Active Substance: ASCORBIC ACID
     Route: 065
  3. TYLENOL [Concomitant]
     Active Substance: ACETAMINOPHEN
     Route: 065
  4. ESBRIET [Suspect]
     Active Substance: PIRFENIDONE
     Indication: IDIOPATHIC PULMONARY FIBROSIS
     Route: 048
  5. LAMICTAL [Concomitant]
     Active Substance: LAMOTRIGINE
     Route: 065
  6. LEXAPRO [Concomitant]
     Active Substance: ESCITALOPRAM OXALATE
     Route: 065
  7. LISINOPRIL. [Concomitant]
     Active Substance: LISINOPRIL
  8. SEROQUEL [Concomitant]
     Active Substance: QUETIAPINE FUMARATE
     Route: 065
  9. IMITREX [Concomitant]
     Active Substance: SUMATRIPTAN SUCCINATE
     Route: 065
  10. OMEPRAZOLE. [Concomitant]
     Active Substance: OMEPRAZOLE
     Route: 065

REACTIONS (1)
  - Death [Fatal]
